FAERS Safety Report 14458726 (Version 1)
Quarter: 2018Q1

REPORT INFORMATION
  Report Type: Spontaneous
  Country: DE (occurrence: DE)
  Receive Date: 20180130
  Receipt Date: 20180130
  Transmission Date: 20180509
  Serious: Yes (Other)
  Sender: FDA-Public Use
  Company Number: DE-BAYER-2017-240317

PATIENT
  Age: 26 Year
  Sex: Female
  Weight: 96.3 kg

DRUGS (2)
  1. CYTOTEC [Concomitant]
     Active Substance: MISOPROSTOL
     Dosage: UNK
     Dates: start: 20140714, end: 20140714
  2. JAYDESS [Suspect]
     Active Substance: LEVONORGESTREL
     Dosage: 14 MCG/24HR, CONT
     Route: 015
     Dates: start: 20140714, end: 20160201

REACTIONS (3)
  - Pregnancy with contraceptive device [Recovered/Resolved]
  - Retained placenta or membranes [None]
  - Drug ineffective [None]

NARRATIVE: CASE EVENT DATE: 201512
